FAERS Safety Report 9127570 (Version 1)
Quarter: 2013Q1

REPORT INFORMATION
  Report Type: Spontaneous
  Country: US (occurrence: US)
  Receive Date: 20130228
  Receipt Date: 20130228
  Transmission Date: 20140127
  Serious: No
  Sender: FDA-Public Use
  Company Number: US-GLAXOSMITHKLINE-A0983986A

PATIENT
  Age: 13 Year
  Sex: Male

DRUGS (3)
  1. LAMICTAL [Suspect]
     Route: 065
  2. SABRIL [Suspect]
     Indication: COMPLEX PARTIAL SEIZURES
     Dosage: 1000MG THREE TIMES PER DAY
     Route: 048
     Dates: start: 20120504
  3. DILANTIN [Concomitant]

REACTIONS (3)
  - Diplopia [Unknown]
  - Abdominal discomfort [Unknown]
  - Anticonvulsant drug level above therapeutic [Unknown]
